FAERS Safety Report 25250197 (Version 1)
Quarter: 2025Q2

REPORT INFORMATION
  Report Type: Spontaneous
  Country: US (occurrence: None)
  Receive Date: 20250429
  Receipt Date: 20250429
  Transmission Date: 20250716
  Serious: Yes (Death)
  Sender: FDA-CTU
  Company Number: None

PATIENT
  Age: 21 Year
  Sex: Male
  Weight: 74.25 kg

DRUGS (7)
  1. BUSPIRONE [Suspect]
     Active Substance: BUSPIRONE HYDROCHLORIDE
     Indication: Depression
     Dosage: OTHER QUANTITY : 3 CAPSULE(S);?FREQUENCY : AT BEDTIME;?
     Route: 048
  2. BUSPIRONE [Suspect]
     Active Substance: BUSPIRONE HYDROCHLORIDE
     Indication: Anxiety
     Dosage: OTHER QUANTITY : 1 TABLET(S);?FREQUENCY : TWICE A DAY;?
     Route: 048
  3. FLUOXETINE [Concomitant]
     Active Substance: FLUOXETINE HYDROCHLORIDE
  4. lithium carbonate 300 mg 3 times daily [Concomitant]
     Dosage: FREQUENCY : 3 TIMES A DAY;?
  5. methylphenidate 27 mg ER daily [Concomitant]
     Dosage: FREQUENCY : DAILY;?
  6. dicyclomine 10 mg 4 times daily as needed [Concomitant]
  7. omeprazole 40 mg daily before meal [Concomitant]
     Dosage: FREQUENCY : DAILY;?

REACTIONS (1)
  - Completed suicide [None]

NARRATIVE: CASE EVENT DATE: 20250402
